FAERS Safety Report 5858832-9 (Version None)
Quarter: 2008Q3

REPORT INFORMATION
  Report Type: 
  Country: None (occurrence: None)
  Receive Date: 20080818
  Receipt Date: 20080624
  Transmission Date: 20090109
  Serious: No
  Sender: FDA-Public Use
  Company Number: WAES 0708USA02911

PATIENT
  Age: 83 Year
  Sex: Female

DRUGS (5)
  1. JANUVIA [Suspect]
     Indication: TYPE 2 DIABETES MELLITUS
     Dosage: 100 MG/DAILY/PO ; 50 MG/DAILY/PO
     Route: 048
     Dates: start: 20070725
  2. ATACAND [Concomitant]
  3. GLUCOTROL [Concomitant]
  4. SYNTHROID [Concomitant]
  5. HYDROCHLOROTHIAZIDE [Concomitant]

REACTIONS (5)
  - CONSTIPATION [None]
  - COUGH [None]
  - CYSTITIS [None]
  - PRURITUS [None]
  - UPPER RESPIRATORY TRACT INFECTION [None]
